FAERS Safety Report 6063085-5 (Version None)
Quarter: 2009Q1

REPORT INFORMATION
  Report Type: 
  Country: None (occurrence: None)
  Receive Date: 20090129
  Receipt Date: 20090119
  Transmission Date: 20090719
  Serious: Yes (Other)
  Sender: FDA-Public Use
  Company Number: CIP09000112

PATIENT
  Age: 75 Year
  Sex: Male

DRUGS (4)
  1. ACTONEL WITH CALCIUM (COPACKAGED) [Suspect]
     Dosage: 1 TABLET CYCLIC DAILY, ORAL
     Route: 048
     Dates: start: 20070513
  2. ALL OTHER THERAPEUTIC PRODUCTS [Concomitant]
  3. DIAMICRON (GLICLAZIDE) [Concomitant]
  4. PANTOPRAZOLE SODIUM [Concomitant]

REACTIONS (5)
  - ABDOMINAL PAIN [None]
  - ASTHENIA [None]
  - DISCOMFORT [None]
  - DYSPNOEA [None]
  - OESOPHAGEAL PERFORATION [None]
